FAERS Safety Report 6370945-4 (Version None)
Quarter: 2009Q3

REPORT INFORMATION
  Report Type: 
  Country: None (occurrence: None)
  Receive Date: 20090923
  Receipt Date: 20071029
  Transmission Date: 20100115
  Serious: No
  Sender: FDA-Public Use
  Company Number: US-ASTRAZENECA-2006UW22643

PATIENT
  Age: 63 Year
  Sex: Male
  Weight: 81.6 kg

DRUGS (26)
  1. SEROQUEL [Suspect]
     Indication: SCHIZOPHRENIA
     Route: 048
     Dates: start: 19970101, end: 20050501
  2. SEROQUEL [Suspect]
     Indication: BIPOLAR DISORDER
     Route: 048
     Dates: start: 19970101, end: 20050501
  3. SEROQUEL [Suspect]
     Indication: DEPRESSION
     Route: 048
     Dates: start: 19970101, end: 20050501
  4. SEROQUEL [Suspect]
     Indication: SLEEP DISORDER
     Route: 048
     Dates: start: 19970101, end: 20050501
  5. SEROQUEL [Suspect]
     Dosage: 100 - 200 MG
     Route: 048
     Dates: start: 20030113
  6. SEROQUEL [Suspect]
     Dosage: 100 - 200 MG
     Route: 048
     Dates: start: 20030113
  7. SEROQUEL [Suspect]
     Dosage: 100 - 200 MG
     Route: 048
     Dates: start: 20030113
  8. SEROQUEL [Suspect]
     Dosage: 100 - 200 MG
     Route: 048
     Dates: start: 20030113
  9. THORAZINE [Concomitant]
  10. ALBUTEROL [Concomitant]
  11. PREDNISOLONE [Concomitant]
  12. DOXYCYCLINE [Concomitant]
  13. DEPAKOTE [Concomitant]
  14. AMBIEN [Concomitant]
  15. ZOCOR [Concomitant]
  16. LOPRESSOR [Concomitant]
  17. PERCOCET [Concomitant]
  18. SEREVENT [Concomitant]
  19. REMERON [Concomitant]
  20. VALSARTAN [Concomitant]
  21. NITROGLYCERIN [Concomitant]
  22. MELATONIN [Concomitant]
  23. ADVAIR HFA [Concomitant]
  24. LEVAQUIN [Concomitant]
  25. XOPENEX [Concomitant]
  26. LOVENOX [Concomitant]

REACTIONS (2)
  - DIABETES MELLITUS [None]
  - LIMB INJURY [None]
